FAERS Safety Report 12349156 (Version 1)
Quarter: 2016Q2

REPORT INFORMATION
  Report Type: Spontaneous
  Country: US (occurrence: US)
  Receive Date: 20160509
  Receipt Date: 20160509
  Transmission Date: 20160815
  Serious: Yes (Other)
  Sender: FDA-Public Use
  Company Number: US-MDT-ADR-2015-02326

PATIENT
  Age: 29 Year
  Sex: Male

DRUGS (4)
  1. BENADRYL [Suspect]
     Active Substance: DIPHENHYDRAMINE HYDROCHLORIDE
     Route: 050
  2. BACLOFEN. [Suspect]
     Active Substance: BACLOFEN
     Route: 048
  3. NEURONTIN [Suspect]
     Active Substance: GABAPENTIN
     Route: 050
  4. BACLOFEN. [Suspect]
     Active Substance: BACLOFEN
     Dosage: 309 MCG/DAY
     Route: 037

REACTIONS (5)
  - Drug withdrawal syndrome [Unknown]
  - Insomnia [Unknown]
  - Hyperhidrosis [Unknown]
  - Muscle spasticity [Unknown]
  - Pruritus [Unknown]
